FAERS Safety Report 5870767-4 (Version None)
Quarter: 2008Q3

REPORT INFORMATION
  Report Type: 
  Country: None (occurrence: None)
  Receive Date: 20080904
  Receipt Date: 20080825
  Transmission Date: 20090109
  Serious: Yes (Hospitalization, Other)
  Sender: FDA-Public Use
  Company Number: IE-ABBOTT-08P-167-0472716-00

PATIENT
  Sex: Female

DRUGS (1)
  1. HUMIRA [Suspect]
     Indication: RHEUMATOID ARTHRITIS
     Dates: start: 20071201, end: 20080501

REACTIONS (5)
  - ARTHRITIS INFECTIVE [None]
  - LIMB INJURY [None]
  - LOCALISED INFECTION [None]
  - POSTOPERATIVE WOUND INFECTION [None]
  - SKIN LACERATION [None]
